FAERS Safety Report 7705290-5 (Version None)
Quarter: 2011Q3

REPORT INFORMATION
  Report Type: 
  Country: None (occurrence: None)
  Receive Date: 20110822
  Receipt Date: 20110822
  Transmission Date: 20111222
  Serious: Yes (Hospitalization)
  Sender: FDA-Public Use
  Company Number: None

PATIENT
  Age: 81 Year
  Sex: Male
  Weight: 78.2 kg

DRUGS (1)
  1. CIPROFLOXACIN [Suspect]
     Indication: SIALOADENITIS
     Dosage: 500 MG BID PO
     Route: 048
     Dates: start: 20110801, end: 20110803

REACTIONS (1)
  - RASH [None]
